FAERS Safety Report 7533464-5 (Version None)
Quarter: 2011Q2

REPORT INFORMATION
  Report Type: 
  Country: None (occurrence: None)
  Receive Date: 20110608
  Receipt Date: 20110530
  Transmission Date: 20111010
  Serious: Yes (Life-Threatening, Hospitalization, Other)
  Sender: FDA-Public Use
  Company Number: US-UCBSA-034203

PATIENT
  Age: 21 Year
  Sex: Female
  Weight: 83 kg

DRUGS (2)
  1. LEVETIRACETAM [Suspect]
     Indication: EPILEPSY
     Route: 048
     Dates: start: 20110308
  2. KLOR-CON M10 [Concomitant]
     Route: 048
     Dates: start: 20100902

REACTIONS (2)
  - NIGHTMARE [None]
  - TEMPERATURE INTOLERANCE [None]
